FAERS Safety Report 8511920-0 (Version None)
Quarter: 2012Q3

REPORT INFORMATION
  Report Type: 
  Country: None (occurrence: None)
  Receive Date: 20120716
  Receipt Date: 20120715
  Transmission Date: 20120928
  Serious: Yes (Death)
  Sender: FDA-Public Use
  Company Number: PHHY2012IT053645

PATIENT
  Sex: Male
  Weight: 68 kg

DRUGS (1)
  1. CERTICAN [Suspect]

REACTIONS (1)
  - TRANSPLANT REJECTION [None]
